FAERS Safety Report 18307737 (Version 6)
Quarter: 2020Q4

REPORT INFORMATION
  Report Type: Spontaneous
  Country: US (occurrence: US)
  Receive Date: 20200924
  Receipt Date: 20201214
  Transmission Date: 20210113
  Serious: No
  Sender: FDA-Public Use
  Company Number: US-SA-2020SA256471

PATIENT

DRUGS (1)
  1. LANTUS [Suspect]
     Active Substance: INSULIN GLARGINE
     Indication: TYPE 2 DIABETES MELLITUS
     Dosage: 50 IU, QD (SLIDING SCALE)
     Route: 065
     Dates: start: 2019

REACTIONS (2)
  - Device issue [Recovering/Resolving]
  - Injury associated with device [Recovering/Resolving]
